FAERS Safety Report 9213524 (Version 3)
Quarter: 2013Q2

REPORT INFORMATION
  Report Type: Spontaneous
  Country: US (occurrence: US)
  Receive Date: 20130405
  Receipt Date: 20130510
  Transmission Date: 20140414
  Serious: Yes (Disabling)
  Sender: FDA-Public Use
  Company Number: US-PURDUE-USA-2013-0100703

PATIENT
  Sex: Male
  Weight: 99.77 kg

DRUGS (10)
  1. OXYCONTIN TABLETS [Suspect]
     Indication: NECK PAIN
     Dosage: 40 MG, BID
     Route: 048
     Dates: start: 1999, end: 2011
  2. OXYCONTIN TABLETS [Suspect]
     Indication: MUSCULOSKELETAL PAIN
  3. MELATONIN [Concomitant]
     Indication: INSOMNIA
     Dosage: 3 MG, DAILY
     Route: 048
  4. AMBIEN [Concomitant]
     Indication: INSOMNIA
     Dosage: 10 MG, HS
     Route: 048
  5. OPANA [Concomitant]
     Indication: PAIN
     Dosage: 40 MG, BID
  6. BISCODYL [Concomitant]
     Indication: LAXATIVE SUPPORTIVE CARE
  7. EFFEXOR [Concomitant]
     Indication: DEPRESSION
     Dosage: 150 MG, DAILY
     Route: 048
  8. METHADONE [Concomitant]
     Indication: PAIN
     Dosage: 10 MG, DAILY
     Route: 048
  9. NEURONTIN [Concomitant]
     Indication: NEURALGIA
     Dosage: 800 MG, TID
     Route: 048
  10. MIRALAX                            /00754501/ [Concomitant]
     Indication: CONSTIPATION
     Dosage: 3550 UNK, UNK
     Route: 048

REACTIONS (23)
  - Visual acuity reduced [Not Recovered/Not Resolved]
  - Hypertension [Not Recovered/Not Resolved]
  - Loss of libido [Not Recovered/Not Resolved]
  - Contusion [Not Recovered/Not Resolved]
  - Chest pain [Not Recovered/Not Resolved]
  - Dyspnoea [Not Recovered/Not Resolved]
  - Heart rate decreased [Not Recovered/Not Resolved]
  - Dehydration [Not Recovered/Not Resolved]
  - Mood swings [Unknown]
  - Urinary retention [Unknown]
  - Muscle spasms [Not Recovered/Not Resolved]
  - Chills [Not Recovered/Not Resolved]
  - Insomnia [Not Recovered/Not Resolved]
  - Anxiety [Not Recovered/Not Resolved]
  - Nausea [Not Recovered/Not Resolved]
  - Malaise [Not Recovered/Not Resolved]
  - Constipation [Not Recovered/Not Resolved]
  - Depression [Not Recovered/Not Resolved]
  - Swelling [Not Recovered/Not Resolved]
  - Tremor [Not Recovered/Not Resolved]
  - Dizziness [Not Recovered/Not Resolved]
  - Gastrointestinal disorder [Not Recovered/Not Resolved]
  - Unevaluable event [Not Recovered/Not Resolved]
